FAERS Safety Report 12628700 (Version 1)
Quarter: 2016Q3

REPORT INFORMATION
  Report Type: Spontaneous
  Country: US (occurrence: US)
  Receive Date: 20160808
  Receipt Date: 20160808
  Transmission Date: 20161109
  Serious: No
  Sender: FDA-Public Use
  Company Number: US-JAZZ-2016-US-004396

PATIENT
  Sex: Female
  Weight: 99.77 kg

DRUGS (16)
  1. XYREM [Suspect]
     Active Substance: SODIUM OXYBATE
     Dosage: 2 G, BID
     Route: 048
     Dates: start: 201603
  2. METOPROLOL. [Concomitant]
     Active Substance: METOPROLOL
  3. VITAMIN B12 [Concomitant]
     Active Substance: CYANOCOBALAMIN
  4. BOTOX [Concomitant]
     Active Substance: ONABOTULINUMTOXINA
  5. VITAMIN D [Concomitant]
     Active Substance: CHOLECALCIFEROL
  6. XYREM [Suspect]
     Active Substance: SODIUM OXYBATE
     Indication: NARCOLEPSY
     Dosage: 1.5 G, BID
     Route: 048
     Dates: start: 20160302, end: 201603
  7. FLEXERIL [Concomitant]
     Active Substance: CYCLOBENZAPRINE HYDROCHLORIDE
  8. NUVIGIL [Concomitant]
     Active Substance: ARMODAFINIL
  9. CLONIDINE HCL [Concomitant]
     Active Substance: CLONIDINE HYDROCHLORIDE
  10. LAMICTAL [Concomitant]
     Active Substance: LAMOTRIGINE
  11. MULTIVITAMINS [Concomitant]
     Active Substance: VITAMINS
  12. NORCO [Concomitant]
     Active Substance: ACETAMINOPHEN\HYDROCODONE BITARTRATE
  13. GABAPENTIN. [Concomitant]
     Active Substance: GABAPENTIN
  14. CYANOCOBALAMIN. [Concomitant]
     Active Substance: CYANOCOBALAMIN
  15. DICLOFENAC [Concomitant]
     Active Substance: DICLOFENAC
  16. NORVASC [Concomitant]
     Active Substance: AMLODIPINE BESYLATE

REACTIONS (3)
  - Nausea [Not Recovered/Not Resolved]
  - Gastrointestinal hypermotility [Not Recovered/Not Resolved]
  - Headache [Not Recovered/Not Resolved]
